FAERS Safety Report 5086506-3 (Version None)
Quarter: 2006Q3

REPORT INFORMATION
  Report Type: 
  Country: None (occurrence: None)
  Receive Date: 20060821
  Receipt Date: 20060821
  Transmission Date: 20061208
  Serious: No
  Sender: FDA-Public Use
  Company Number: None

PATIENT
  Age: 46 Year
  Sex: Male
  Weight: 72 kg

DRUGS (12)
  1. OMNISCAN [Suspect]
     Indication: VASCULAR TEST
     Dosage: 40 CC ONE TIME INJECTION IV
     Route: 042
     Dates: start: 20050721, end: 20050721
  2. OMNISCAN [Suspect]
     Indication: VENOOCCLUSIVE DISEASE
     Dosage: 40 CC ONE TIME INJECTION IV
     Route: 042
     Dates: start: 20050721, end: 20050721
  3. ATARAX [Concomitant]
  4. CLONIDINE [Concomitant]
  5. DILANTIN [Concomitant]
  6. KAYEXALATE [Concomitant]
  7. LASIX [Concomitant]
  8. LEXAPRO [Concomitant]
  9. LOPRESSOR [Concomitant]
  10. NORVASC [Concomitant]
  11. ATENOLOL [Concomitant]
  12. RENAGEL [Concomitant]

REACTIONS (2)
  - NEPHROGENIC FIBROSING DERMOPATHY [None]
  - SKIN TIGHTNESS [None]
